FAERS Safety Report 7334408-1 (Version None)
Quarter: 2011Q1

REPORT INFORMATION
  Report Type: 
  Country: None (occurrence: None)
  Receive Date: 20110307
  Receipt Date: 20110223
  Transmission Date: 20110831
  Serious: Yes (Hospitalization, Other)
  Sender: FDA-Public Use
  Company Number: PHHY2011JP14929

PATIENT
  Age: 6 Year
  Sex: Male

DRUGS (1)
  1. TEGRETOL [Suspect]
     Dosage: 50 MG, QD
     Route: 048
     Dates: start: 20101201

REACTIONS (5)
  - NYSTAGMUS [None]
  - PUPILLARY REFLEX IMPAIRED [None]
  - PUPILS UNEQUAL [None]
  - HYPOAESTHESIA [None]
  - INTESTINAL OBSTRUCTION [None]
